FAERS Safety Report 8348620-6 (Version None)
Quarter: 2012Q2

REPORT INFORMATION
  Report Type: 
  Country: None (occurrence: None)
  Receive Date: 20120510
  Receipt Date: 20120427
  Transmission Date: 20120825
  Serious: No
  Sender: FDA-Public Use
  Company Number: 100979

PATIENT
  Age: 45 Year
  Sex: Female
  Weight: 113 kg

DRUGS (1)
  1. AVONEX [Suspect]
     Indication: MULTIPLE SCLEROSIS
     Route: 030
     Dates: start: 19960605

REACTIONS (10)
  - INFLUENZA LIKE ILLNESS [None]
  - HEADACHE [None]
  - MALAISE [None]
  - ABDOMINAL PAIN [None]
  - NECK PAIN [None]
  - NAUSEA [None]
  - INJECTION SITE HYPERSENSITIVITY [None]
  - SKIN ULCER [None]
  - BACK PAIN [None]
  - INJECTION SITE PAIN [None]
